FAERS Safety Report 8834722 (Version 2)
Quarter: 2013Q1

REPORT INFORMATION
  Report Type: Spontaneous
  Country: US (occurrence: None)
  Receive Date: 20120926
  Receipt Date: 20121116
  Transmission Date: 20140127
  Serious: Yes (Hospitalization)
  Sender: FDA-Public Use
  Company Number: 2012033389

PATIENT
  Age: 54 Year
  Sex: Female
  Weight: 46.72 kg

DRUGS (8)
  1. HIZENTRA (IMMUNOGLOBULIN HUMAN NORMAL) [Suspect]
     Indication: IMMUNODEFICIENCY COMMON VARIABLE
     Dosage: 3 ABDOMINAL SITES
     Dates: start: 20120912, end: 20120912
  2. BENADRYL (DIPHENHYDRAMINE HYDROCHLORIDE) [Concomitant]
  3. TYLENOL (PARACETAMOL) [Concomitant]
  4. ZYRTEC (CETIRIZINE HYDROCHLORIDE)? [Concomitant]
  5. PREDNISONE (PREDNISONE) [Concomitant]
  6. PERCOCET (OXYCOCET) [Concomitant]
  7. LAXATIVE (LAXATIVES) [Concomitant]
  8. IPRATROPIUM BROMIDE (IPRATROPIUM BROMIDE) [Concomitant]

REACTIONS (10)
  - Muscle spasms [None]
  - Neck pain [None]
  - Infusion site swelling [None]
  - Infusion site reaction [None]
  - Chest discomfort [None]
  - Headache [None]
  - Incorrect drug administration rate [None]
  - Fluid intake reduced [None]
  - Abdominal distension [None]
  - Musculoskeletal stiffness [None]
